FAERS Safety Report 18243905 (Version 1)
Quarter: 2020Q3

REPORT INFORMATION
  Report Type: Spontaneous
  Country: US (occurrence: US)
  Receive Date: 20200908
  Receipt Date: 20200908
  Transmission Date: 20201103
  Serious: Yes (Other)
  Sender: FDA-Public Use
  Company Number: US-GILEAD-2020-0494015

PATIENT
  Age: 15 Year
  Sex: Male
  Weight: 100 kg

DRUGS (12)
  1. CEFTRIAXONE. [Concomitant]
     Active Substance: CEFTRIAXONE
  2. MORPHINE [Concomitant]
     Active Substance: MORPHINE
  3. PEPCID [Concomitant]
     Active Substance: FAMOTIDINE
  4. REMDESIVIR. [Suspect]
     Active Substance: REMDESIVIR
     Indication: COVID-19
     Dosage: 200 MG, ONCE
     Route: 042
     Dates: start: 20200830, end: 20200830
  5. LOVENOX [Concomitant]
     Active Substance: ENOXAPARIN SODIUM
  6. ZOFRAN [Concomitant]
     Active Substance: ONDANSETRON HYDROCHLORIDE
  7. REMDESIVIR. [Suspect]
     Active Substance: REMDESIVIR
     Dosage: 100 MG, QD
     Route: 042
     Dates: start: 20200831, end: 20200902
  8. TORADOL [Concomitant]
     Active Substance: KETOROLAC TROMETHAMINE
  9. ALBUTEROL HFA [Concomitant]
     Active Substance: ALBUTEROL SULFATE
  10. ACETAMINOPHEN. [Concomitant]
     Active Substance: ACETAMINOPHEN
  11. DEXAMETHASONE. [Concomitant]
     Active Substance: DEXAMETHASONE
  12. IBUPROFEN. [Concomitant]
     Active Substance: IBUPROFEN

REACTIONS (1)
  - Liver function test increased [Unknown]

NARRATIVE: CASE EVENT DATE: 20200903
